FAERS Safety Report 23262438 (Version 2)
Quarter: 2023Q4

REPORT INFORMATION
  Report Type: Spontaneous
  Country: CA (occurrence: CA)
  Receive Date: 20231205
  Receipt Date: 20231227
  Transmission Date: 20240110
  Serious: Yes (Death, Other)
  Sender: FDA-Public Use
  Company Number: CA-BAXTER-2023BAX037324

PATIENT
  Sex: Male

DRUGS (3)
  1. DEXTROSE\LACTIC ACID\MAGNESIUM CL\POTASSIUM CL\SODIUM BICARBONATE\SODI [Suspect]
     Active Substance: DEXTROSE\LACTIC ACID\MAGNESIUM CL\POTASSIUM CL\SODIUM BICARBONATE\SODIUM CL
     Indication: Haemofiltration
     Dosage: UNK
     Route: 065
     Dates: start: 20231124
  2. DEXTROSE [Suspect]
     Active Substance: DEXTROSE\DEXTROSE MONOHYDRATE
     Indication: Hypoglycaemia
     Dosage: DEXTROSE 5% IN WATER
     Route: 065
     Dates: start: 20231126
  3. NOREPINEPHRINE BITARTRATE [Suspect]
     Active Substance: NOREPINEPHRINE BITARTRATE
     Route: 065

REACTIONS (10)
  - Death [Fatal]
  - Adverse event [Unknown]
  - Abdominal pain [Unknown]
  - Abdominal distension [Unknown]
  - Jaundice [Unknown]
  - Extrasystoles [Unknown]
  - Hypoglycaemia [Unknown]
  - Arrhythmia [Unknown]
  - Acidosis [Unknown]
  - Hypotension [Unknown]

NARRATIVE: CASE EVENT DATE: 20231126
